FAERS Safety Report 4578577-5 (Version None)
Quarter: 2005Q1

REPORT INFORMATION
  Report Type: 
  Country: None (occurrence: None)
  Receive Date: 20050211
  Receipt Date: 20050202
  Transmission Date: 20050727
  Serious: Yes (Other)
  Sender: FDA-Public Use
  Company Number: US-JNJFOC-20050201154

PATIENT
  Age: 12 Year
  Sex: Female

DRUGS (2)
  1. TYLENOL [Suspect]
     Route: 049
  2. TYLENOL [Suspect]
     Indication: HEADACHE
     Route: 049

REACTIONS (3)
  - MUSCLE TIGHTNESS [None]
  - PAIN IN EXTREMITY [None]
  - POSTURING [None]
